FAERS Safety Report 8525446-1 (Version None)
Quarter: 2012Q3

REPORT INFORMATION
  Report Type: 
  Country: None (occurrence: None)
  Receive Date: 20120710
  Receipt Date: 20120625
  Transmission Date: 20120928
  Serious: Yes (Death)
  Sender: FDA-Public Use
  Company Number: 1303383

PATIENT
  Age: 62 Year
  Sex: Female
  Weight: 63 kg

DRUGS (2)
  1. OXALIPLATIN [Suspect]
     Indication: COLORECTAL CANCER METASTATIC
     Dosage: 130 MG/M2 MILLIGRAM(S)/SQ. METER (3 WEEK) INTRAVENOUS (NOT OTHERWISE SPECIFIED)
     Route: 042
  2. XELODA [Suspect]
     Indication: COLORECTAL CANCER METASTATIC
     Dosage: 2000 MG/M2 MILLIGRAM(S) SQ. METER (14 DAY) ORAL
     Route: 048

REACTIONS (9)
  - ARTERIOSCLEROSIS CORONARY ARTERY [None]
  - DEHYDRATION [None]
  - ESCHERICHIA TEST POSITIVE [None]
  - DIARRHOEA [None]
  - AORTIC ARTERIOSCLEROSIS [None]
  - LUNG DISORDER [None]
  - FEBRILE NEUTROPENIA [None]
  - METASTASES TO LIVER [None]
  - PATHOGEN RESISTANCE [None]
